FAERS Safety Report 11691897 (Version 8)
Quarter: 2016Q4

REPORT INFORMATION
  Report Type: Spontaneous
  Country: CA (occurrence: CA)
  Receive Date: 20151103
  Receipt Date: 20161111
  Transmission Date: 20170206
  Serious: Yes (Disabling, Other)
  Sender: FDA-Public Use
  Company Number: CA-ROCHE-1652846

PATIENT
  Sex: Female

DRUGS (13)
  1. XOLAIR [Suspect]
     Active Substance: OMALIZUMAB
     Route: 058
     Dates: start: 20151223
  2. XOLAIR [Suspect]
     Active Substance: OMALIZUMAB
     Indication: ASTHMA
     Route: 058
     Dates: start: 20111021
  3. XOLAIR [Suspect]
     Active Substance: OMALIZUMAB
     Route: 058
     Dates: start: 20161006
  4. SINGULAIR [Concomitant]
     Active Substance: MONTELUKAST SODIUM
  5. ADVAIR HFA [Concomitant]
     Active Substance: FLUTICASONE PROPIONATE\SALMETEROL XINAFOATE
  6. REACTINE (CANADA) [Concomitant]
     Active Substance: CETIRIZINE HYDROCHLORIDE
  7. NASONEX [Concomitant]
     Active Substance: MOMETASONE FUROATE
  8. BIAXIN [Concomitant]
     Active Substance: CLARITHROMYCIN
  9. XOLAIR [Suspect]
     Active Substance: OMALIZUMAB
     Route: 058
     Dates: start: 20160217
  10. VENTOLIN [Suspect]
     Active Substance: ALBUTEROL SULFATE
     Indication: PRODUCT USED FOR UNKNOWN INDICATION
     Route: 065
  11. XOLAIR [Suspect]
     Active Substance: OMALIZUMAB
     Route: 058
     Dates: start: 20160421
  12. PREDNISONE. [Concomitant]
     Active Substance: PREDNISONE
     Dosage: 10-12 TIMES IN 12 MONTHS
     Route: 065
  13. ATROVENT [Concomitant]
     Active Substance: IPRATROPIUM BROMIDE

REACTIONS (27)
  - Abscess intestinal [Unknown]
  - Uterine mass [Unknown]
  - Pain in extremity [Unknown]
  - Viral infection [Recovering/Resolving]
  - Gastrointestinal disorder [Unknown]
  - Sinus disorder [Unknown]
  - Sleep disorder [Unknown]
  - Sinusitis [Unknown]
  - Hypersensitivity [Unknown]
  - Breast mass [Unknown]
  - Malaise [Unknown]
  - Anorectal disorder [Unknown]
  - Bronchitis [Unknown]
  - Abdominal discomfort [Unknown]
  - Oropharyngeal pain [Recovering/Resolving]
  - Fatigue [Recovering/Resolving]
  - Depression [Unknown]
  - Intestinal mass [Unknown]
  - Uterine disorder [Unknown]
  - Lower respiratory tract infection [Unknown]
  - Asthma [Unknown]
  - Infection [Unknown]
  - Drug ineffective [Unknown]
  - Blood pressure systolic increased [Unknown]
  - Intestinal haemorrhage [Unknown]
  - Blood iron decreased [Unknown]
  - Productive cough [Unknown]

NARRATIVE: CASE EVENT DATE: 2012
